FAERS Safety Report 21156271 (Version 1)
Quarter: 2022Q3

REPORT INFORMATION
  Report Type: Report from Study
  Country: GB (occurrence: GB)
  Receive Date: 20220801
  Receipt Date: 20220801
  Transmission Date: 20221027
  Serious: Yes (Other)
  Sender: FDA-Public Use
  Company Number: GB-PFIZER INC-202201003584

PATIENT
  Age: 66 Year
  Sex: Male

DRUGS (1)
  1. MYLOTARG [Suspect]
     Active Substance: GEMTUZUMAB OZOGAMICIN
     Dosage: 3 MG/M2, DAILY
     Route: 042
     Dates: start: 20160107, end: 20160112

REACTIONS (1)
  - Disseminated intravascular coagulation [Recovered/Resolved with Sequelae]

NARRATIVE: CASE EVENT DATE: 20160122
